FAERS Safety Report 7350484-4 (Version None)
Quarter: 2011Q1

REPORT INFORMATION
  Report Type: 
  Country: None (occurrence: None)
  Receive Date: 20110303
  Receipt Date: 20110210
  Transmission Date: 20110831
  Serious: Yes (Hospitalization, Other)
  Sender: FDA-Public Use
  Company Number: JPI-P-013929

PATIENT
  Age: 49 Year
  Sex: Male

DRUGS (15)
  1. OMEPRAZOLE [Concomitant]
  2. PIOGLITAZONE [Concomitant]
  3. IBUPROFEN [Concomitant]
  4. CANDESARTAN CILEXETIL [Concomitant]
  5. VYTORIN [Concomitant]
  6. INSULIN [Concomitant]
  7. XYREM [Suspect]
     Indication: PRODUCT USED FOR UNKNOWN INDICATION
     Dosage: (4.5 GM,1 D),ORAL ; (6 GM,1 D),ORAL ; (4.5 GM,1 D),ORAL ; (3 GM,1 D),ORAL ; (4.5 GM,1 D),ORAL
     Route: 048
     Dates: start: 20090916, end: 20091004
  8. XYREM [Suspect]
     Indication: PRODUCT USED FOR UNKNOWN INDICATION
     Dosage: (4.5 GM,1 D),ORAL ; (6 GM,1 D),ORAL ; (4.5 GM,1 D),ORAL ; (3 GM,1 D),ORAL ; (4.5 GM,1 D),ORAL
     Route: 048
     Dates: start: 20091016, end: 20091213
  9. XYREM [Suspect]
     Indication: PRODUCT USED FOR UNKNOWN INDICATION
     Dosage: (4.5 GM,1 D),ORAL ; (6 GM,1 D),ORAL ; (4.5 GM,1 D),ORAL ; (3 GM,1 D),ORAL ; (4.5 GM,1 D),ORAL
     Route: 048
     Dates: start: 20091214, end: 20100629
  10. XYREM [Suspect]
     Indication: PRODUCT USED FOR UNKNOWN INDICATION
     Dosage: (4.5 GM,1 D),ORAL ; (6 GM,1 D),ORAL ; (4.5 GM,1 D),ORAL ; (3 GM,1 D),ORAL ; (4.5 GM,1 D),ORAL
     Route: 048
     Dates: start: 20091005, end: 20091015
  11. XYREM [Suspect]
     Indication: PRODUCT USED FOR UNKNOWN INDICATION
     Dosage: (4.5 GM,1 D),ORAL ; (6 GM,1 D),ORAL ; (4.5 GM,1 D),ORAL ; (3 GM,1 D),ORAL ; (4.5 GM,1 D),ORAL
     Route: 048
     Dates: start: 20100630, end: 20110210
  12. TAMSULOSIN HCL [Concomitant]
  13. BUPRENORPHINE [Concomitant]
  14. METFORMIN [Concomitant]
  15. BETAMETHASONE [Concomitant]

REACTIONS (2)
  - ABDOMINAL HERNIA [None]
  - INFECTION [None]
